FAERS Safety Report 8940778 (Version 3)
Quarter: 2013Q1

REPORT INFORMATION
  Report Type: Spontaneous
  Country: FR (occurrence: FR)
  Receive Date: 20121203
  Receipt Date: 20130301
  Transmission Date: 20140127
  Serious: Yes (Death, Hospitalization, Other)
  Sender: FDA-Public Use
  Company Number: FR-ROCHE-1160560

PATIENT
  Sex: Female

DRUGS (9)
  1. PEGASYS [Suspect]
     Indication: HEPATIC CIRRHOSIS
     Route: 065
     Dates: start: 20110420, end: 20110512
  2. COPEGUS [Suspect]
     Indication: HEPATIC CIRRHOSIS
     Route: 065
     Dates: start: 20110420, end: 20110512
  3. COPEGUS [Suspect]
     Route: 065
     Dates: start: 2006
  4. GLIMEPIRIDE [Concomitant]
  5. MODURETIC [Concomitant]
  6. FOSAVANCE [Concomitant]
  7. KESTINE [Concomitant]
  8. DUROGESIC [Concomitant]
  9. ACTOS [Concomitant]

REACTIONS (8)
  - Septic shock [Fatal]
  - Endocarditis bacterial [Not Recovered/Not Resolved]
  - Septic embolus [Not Recovered/Not Resolved]
  - Pancytopenia [Not Recovered/Not Resolved]
  - Coma [Not Recovered/Not Resolved]
  - Metabolic disorder [Not Recovered/Not Resolved]
  - Headache [Not Recovered/Not Resolved]
  - Candida infection [Not Recovered/Not Resolved]
